FAERS Safety Report 12482898 (Version 2)
Quarter: 2016Q4

REPORT INFORMATION
  Report Type: Report from Study
  Country: CO (occurrence: CO)
  Receive Date: 20160620
  Receipt Date: 20161209
  Transmission Date: 20170207
  Serious: No
  Sender: FDA-Public Use
  Company Number: PHHY2016CO012426

PATIENT
  Age: 68 Year
  Sex: Female
  Weight: 67 kg

DRUGS (1)
  1. TASIGNA [Suspect]
     Active Substance: NILOTINIB
     Indication: CHRONIC MYELOID LEUKAEMIA
     Dosage: 2 DF OF 150 MG, Q12H
     Route: 048
     Dates: start: 20131123

REACTIONS (13)
  - Viral infection [Unknown]
  - Influenza [Unknown]
  - Diarrhoea [Unknown]
  - Fatigue [Unknown]
  - Blood cholesterol increased [Unknown]
  - Headache [Unknown]
  - Dizziness [Unknown]
  - Pain in extremity [Unknown]
  - Movement disorder [Unknown]
  - Depressed mood [Unknown]
  - Nasal congestion [Unknown]
  - Burning sensation [Unknown]
  - Blood glucose increased [Unknown]

NARRATIVE: CASE EVENT DATE: 20160407
